FAERS Safety Report 8918545 (Version 3)
Quarter: 2013Q1

REPORT INFORMATION
  Report Type: Report from Study
  Country: SE (occurrence: SE)
  Receive Date: 20121120
  Receipt Date: 20130212
  Transmission Date: 20140127
  Serious: Yes (Hospitalization)
  Sender: FDA-Public Use
  Company Number: SE-ROCHE-1155863

PATIENT
  Age: 77 Year
  Sex: Male
  Weight: 69.5 kg

DRUGS (4)
  1. RITUXIMAB [Suspect]
     Indication: MALIGNANT LYMPHOID NEOPLASM
     Dosage: DATE LAST DOSE PRIOR TO SAE:12/JAN/2012
     Route: 042
     Dates: start: 20111216
  2. CHLORAMBUCIL [Suspect]
     Indication: MALIGNANT LYMPHOID NEOPLASM
     Dosage: DATE LAST DOSE PRIOR TO SAE:12/JAN/2012
     Route: 048
     Dates: start: 20111217
  3. ZOPICLONE [Concomitant]
     Route: 065
     Dates: start: 20110112, end: 20110112
  4. LANTUS [Concomitant]
     Route: 065
     Dates: start: 20110411

REACTIONS (2)
  - Hypotonia [Recovered/Resolved]
  - Hypotension [Recovered/Resolved]
